FAERS Safety Report 8961913 (Version 1)
Quarter: 2012Q4

REPORT INFORMATION
  Report Type: 
  Country: US (occurrence: US)
  Receive Date: 20121212
  Receipt Date: 20121212
  Transmission Date: 20130627
  Serious: Yes (Hospitalization)
  Sender: FDA-Public Use
  Company Number: US-ASTRAZENECA-2012SE92735

PATIENT

DRUGS (2)
  1. SYMBICORT [Suspect]
     Route: 055
  2. UNSPECIFIED INGREDIENT [Interacting]
     Route: 065

REACTIONS (2)
  - Drug interaction [Unknown]
  - Asthma [Unknown]
